FAERS Safety Report 7931042-7 (Version None)
Quarter: 2011Q4

REPORT INFORMATION
  Report Type: 
  Country: None (occurrence: None)
  Receive Date: 20111121
  Receipt Date: 20111107
  Transmission Date: 20120403
  Serious: Yes (Other)
  Sender: FDA-Public Use
  Company Number: AT-BAYER-2011-107361

PATIENT
  Age: 53 Year
  Sex: Female
  Weight: 63 kg

DRUGS (1)
  1. AVELOX [Suspect]
     Indication: PNEUMONIA
     Dosage: 400 MG, QD
     Route: 048
     Dates: start: 20111013, end: 20111013

REACTIONS (6)
  - NAUSEA [None]
  - TACHYCARDIA [None]
  - TINNITUS [None]
  - ARTHROPATHY [None]
  - ANXIETY [None]
  - HEARING IMPAIRED [None]
